FAERS Safety Report 8118973-2 (Version None)
Quarter: 2012Q1

REPORT INFORMATION
  Report Type: 
  Country: None (occurrence: None)
  Receive Date: 20120207
  Receipt Date: 20120124
  Transmission Date: 20120608
  Serious: Yes (Hospitalization, Disabling, Other)
  Sender: FDA-Public Use
  Company Number: JP-ROCHE-1007231

PATIENT
  Sex: Male

DRUGS (2)
  1. RANIBIZUMAB [Suspect]
     Indication: AGE-RELATED MACULAR DEGENERATION
     Route: 050
     Dates: start: 20111017
  2. LEVOFLOXACIN [Concomitant]
     Dates: start: 20111001, end: 20111001

REACTIONS (3)
  - ENDOPHTHALMITIS [None]
  - ACCIDENT [None]
  - TENDON RUPTURE [None]
